FAERS Safety Report 4372014-1 (Version None)
Quarter: 2004Q2

REPORT INFORMATION
  Report Type: 
  Country: None (occurrence: None)
  Receive Date: 20040602
  Receipt Date: 20040602
  Transmission Date: 20050107
  Serious: No
  Sender: FDA-Public Use
  Company Number: None

PATIENT
  Age: 32 Year
  Sex: Female
  Weight: 63.5036 kg

DRUGS (2)
  1. PAXIL [Suspect]
     Indication: ANXIETY
     Dosage: 20 MG DAY ORAL, 10 MG EVERY 3 DAY ORAL
     Route: 048
  2. PAXIL [Suspect]
     Indication: PREMENSTRUAL SYNDROME
     Dosage: 20 MG DAY ORAL, 10 MG EVERY 3 DAY ORAL
     Route: 048

REACTIONS (8)
  - ABNORMAL BEHAVIOUR [None]
  - AGGRESSION [None]
  - ALCOHOLISM [None]
  - AMNESIA [None]
  - BLOOD ALCOHOL INCREASED [None]
  - IMPRISONMENT [None]
  - LOSS OF CONSCIOUSNESS [None]
  - PSYCHOTIC DISORDER [None]
